FAERS Safety Report 15733292 (Version 12)
Quarter: 2021Q1

REPORT INFORMATION
  Report Type: Other
  Country: DE (occurrence: DE)
  Receive Date: 20181218
  Receipt Date: 20210329
  Transmission Date: 20210419
  Serious: Yes (Hospitalization, Other)
  Sender: FDA-Public Use
  Company Number: DE-ROCHE-2097781

PATIENT
  Age: 42 Year
  Sex: Female

DRUGS (14)
  1. OCREVUS [Suspect]
     Active Substance: OCRELIZUMAB
     Route: 042
     Dates: start: 20200427
  2. CETIRIZIN [Concomitant]
     Active Substance: CETIRIZINE HYDROCHLORIDE
  3. ESTRIFAM [ESTRADIOL] [Concomitant]
     Active Substance: ESTRADIOL
  4. LORANO AKUT [Concomitant]
     Active Substance: LORATADINE
  5. NACL [Concomitant]
     Active Substance: SODIUM CHLORIDE
  6. VITAMIN D3 [Concomitant]
     Active Substance: CHOLECALCIFEROL
  7. OCREVUS [Suspect]
     Active Substance: OCRELIZUMAB
     Route: 042
     Dates: start: 20201026
  8. OCREVUS [Suspect]
     Active Substance: OCRELIZUMAB
     Route: 042
     Dates: start: 20190410
  9. OCREVUS [Suspect]
     Active Substance: OCRELIZUMAB
     Indication: RELAPSING-REMITTING MULTIPLE SCLEROSIS
     Route: 042
     Dates: start: 20180320, end: 20180320
  10. OCREVUS [Suspect]
     Active Substance: OCRELIZUMAB
     Route: 042
     Dates: start: 20180404, end: 20180404
  11. OCREVUS [Suspect]
     Active Substance: OCRELIZUMAB
     Route: 042
     Dates: start: 20181005
  12. ESTRIOL [Concomitant]
     Active Substance: ESTRIOL
  13. PARACETAMOL [Concomitant]
     Active Substance: ACETAMINOPHEN
  14. KENTERA [Concomitant]
     Active Substance: OXYBUTYNIN
     Route: 062

REACTIONS (47)
  - Macular degeneration [Not Recovered/Not Resolved]
  - Hypoaesthesia [Recovered/Resolved]
  - Asthenia [Recovered/Resolved]
  - T-lymphocyte count increased [Not Recovered/Not Resolved]
  - Headache [Recovered/Resolved]
  - Multiple sclerosis [Not Recovered/Not Resolved]
  - Product preparation issue [Unknown]
  - Intentional product use issue [Unknown]
  - Inappropriate schedule of product administration [Unknown]
  - Balance disorder [Recovered/Resolved]
  - Vitreous opacities [Not Recovered/Not Resolved]
  - Pain of skin [Recovered/Resolved]
  - Oral disorder [Recovered/Resolved]
  - Paraesthesia [Recovered/Resolved]
  - Alopecia universalis [Not Recovered/Not Resolved]
  - Stomatitis [Recovered/Resolved]
  - Gait disturbance [Recovered/Resolved]
  - Influenza [Recovered/Resolved]
  - Rash erythematous [Recovered/Resolved]
  - Listless [Recovered/Resolved]
  - Erythema [Recovered/Resolved]
  - Optic nerve disorder [Unknown]
  - Infusion related reaction [Recovered/Resolved]
  - Tongue exfoliation [Recovered/Resolved]
  - Multiple sclerosis relapse [Unknown]
  - Drug ineffective [Unknown]
  - Alopecia [Not Recovered/Not Resolved]
  - Muscle spasms [Recovered/Resolved]
  - Abdominal pain upper [Recovered/Resolved]
  - Burning sensation [Recovered/Resolved]
  - Off label use [Unknown]
  - Nail bed inflammation [Recovered/Resolved]
  - Sensory disturbance [Recovered/Resolved]
  - Muscular weakness [Recovered/Resolved]
  - Blood immunoglobulin G decreased [Not Recovered/Not Resolved]
  - Nausea [Recovered/Resolved]
  - Alopecia areata [Not Recovered/Not Resolved]
  - CD4 lymphocytes increased [Not Recovered/Not Resolved]
  - Neurodermatitis [Not Recovered/Not Resolved]
  - Macular hole [Not Recovered/Not Resolved]
  - Medication error [Unknown]
  - Gastrointestinal infection [Recovered/Resolved]
  - Fatigue [Recovered/Resolved]
  - Oropharyngeal pain [Recovered/Resolved]
  - Fatigue [Recovered/Resolved]
  - Chills [Recovered/Resolved]
  - Polyneuropathy [Recovered/Resolved]

NARRATIVE: CASE EVENT DATE: 20180320
